FAERS Safety Report 12500286 (Version 1)
Quarter: 2016Q2

REPORT INFORMATION
  Report Type: Spontaneous
  Country: ES (occurrence: ES)
  Receive Date: 20160627
  Receipt Date: 20160627
  Transmission Date: 20160815
  Serious: Yes (Other)
  Sender: FDA-Public Use
  Company Number: ES-PFIZER INC-2016310571

PATIENT
  Age: 70 Year
  Sex: Female

DRUGS (1)
  1. LYRICA [Suspect]
     Active Substance: PREGABALIN
     Dosage: UNK

REACTIONS (7)
  - Hypernatraemia [Unknown]
  - Visual impairment [Unknown]
  - Seizure [Unknown]
  - Constipation [Unknown]
  - Eczema [Unknown]
  - Pruritus [Unknown]
  - Dizziness [Unknown]
